FAERS Safety Report 5925404-7 (Version None)
Quarter: 2008Q4

REPORT INFORMATION
  Report Type: 
  Country: None (occurrence: None)
  Receive Date: 20081020
  Receipt Date: 20081020
  Transmission Date: 20090506
  Serious: Yes (Life-Threatening, Hospitalization, Disabling)
  Sender: FDA-Public Use
  Company Number: None

PATIENT
  Age: 29 Year
  Sex: Female
  Weight: 74.8435 kg

DRUGS (2)
  1. NUVARING [Suspect]
     Indication: CONTRACEPTION
     Dosage: 1/MONTH VAG
     Route: 067
     Dates: start: 20030701, end: 20070501
  2. NUVARING [Suspect]
     Indication: DEEP VEIN THROMBOSIS
     Dosage: 1/MONTH VAG
     Route: 067
     Dates: start: 20030701, end: 20070501

REACTIONS (1)
  - DEEP VEIN THROMBOSIS [None]
